FAERS Safety Report 9413140 (Version 4)
Quarter: 2013Q3

REPORT INFORMATION
  Report Type: Report from Study
  Country: US (occurrence: US)
  Receive Date: 20130722
  Receipt Date: 20130911
  Transmission Date: 20140515
  Serious: Yes (Hospitalization, Other)
  Sender: FDA-Public Use
  Company Number: US-TEVA-419977USA

PATIENT
  Age: 65 Year
  Sex: Female
  Weight: 42.3 kg

DRUGS (27)
  1. DOXORUBICIN NOS [Suspect]
     Indication: SARCOMA
     Dates: start: 20121212
  2. DOXORUBICIN NOS [Suspect]
     Dosage: 75MG/M2/111 MG/BOLUS/CYCLE #6
     Dates: start: 20130403, end: 20130403
  3. INVESTIGATIONAL DRUG [Suspect]
     Dosage: 225 MG/M2/333MG/CYCLE 6 DAY 8
  4. ASPIRIN [Concomitant]
     Dates: start: 20120222
  5. PLAVIX [Concomitant]
     Dates: start: 20120222
  6. LIPITOR [Concomitant]
     Dates: start: 20120222
  7. METOPROLOL [Concomitant]
     Dates: start: 20120222
  8. LISINOPRIL [Concomitant]
     Dates: start: 20120222, end: 20130327
  9. NASONEX [Concomitant]
     Dates: start: 2007, end: 201212
  10. ALBUTEROL [Concomitant]
     Dates: start: 2006
  11. PANTOPRAZOLE [Concomitant]
     Dates: start: 20120222
  12. BENZOYL PEROXIDE W/CLINDAMYCIN [Concomitant]
     Dates: start: 1990
  13. TRETINOIN [Concomitant]
     Dates: start: 1990, end: 201301
  14. ACETAMINOPHEN [Concomitant]
     Dates: start: 20121212
  15. DIPHENHYDRAMINE [Concomitant]
     Dates: start: 20121212
  16. ONDANSETRON [Concomitant]
     Dates: start: 20121212
  17. LORAZEPAM [Concomitant]
     Dates: start: 20121213
  18. VICODIN [Concomitant]
     Dates: start: 20121212
  19. EMEND [Concomitant]
     Dates: start: 20121212
  20. PROCHLORPERAZINE [Concomitant]
     Dates: start: 20121213
  21. VASELINE [Concomitant]
     Dates: start: 20130225
  22. COLACE [Concomitant]
     Dates: start: 20121217
  23. ROBITUSSIN [Concomitant]
     Dates: start: 201301
  24. IMODIUM [Concomitant]
     Dates: start: 201301
  25. UREA-CRESOL-SULFONATE SODIUM [Concomitant]
     Dates: start: 20130201
  26. SALINE [Concomitant]
     Dates: start: 2011
  27. MIRALAX [Concomitant]

REACTIONS (1)
  - Cellulitis [Recovered/Resolved]
